FAERS Safety Report 18126480 (Version 1)
Quarter: 2020Q3

REPORT INFORMATION
  Report Type: Spontaneous
  Country: US (occurrence: US)
  Receive Date: 20200808
  Receipt Date: 20200808
  Transmission Date: 20201103
  Serious: Yes (Other)
  Sender: FDA-Public Use
  Company Number: NVSC2020US219782

PATIENT
  Age: 72 Year
  Sex: Female

DRUGS (3)
  1. CEFAZOLIN [Concomitant]
     Active Substance: CEFAZOLIN
     Indication: VASCULAR GRAFT INFECTION
     Dosage: UNK
     Route: 065
  2. VANCOMYCIN [Suspect]
     Active Substance: VANCOMYCIN
     Indication: VASCULAR GRAFT INFECTION
     Dosage: UNK
     Route: 065
  3. PIPERACILLIN/TAZOBACTAM [Concomitant]
     Active Substance: PIPERACILLIN SODIUM\TAZOBACTAM SODIUM
     Indication: VASCULAR GRAFT INFECTION
     Dosage: UNK
     Route: 065

REACTIONS (1)
  - Toxic epidermal necrolysis [Unknown]
